FAERS Safety Report 6818481-2 (Version None)
Quarter: 2010Q3

REPORT INFORMATION
  Report Type: 
  Country: None (occurrence: None)
  Receive Date: 20100706
  Receipt Date: 20080516
  Transmission Date: 20110219
  Serious: No
  Sender: FDA-Public Use
  Company Number: US-PFIZER INC-2008042549

PATIENT
  Age: 44 Year
  Sex: Male

DRUGS (1)
  1. ZITHROMAX [Suspect]

REACTIONS (3)
  - CONJUNCTIVITIS [None]
  - HYPERSENSITIVITY [None]
  - URTICARIA [None]
